FAERS Safety Report 5141087-0 (Version None)
Quarter: 2006Q4

REPORT INFORMATION
  Report Type: 
  Country: None (occurrence: None)
  Receive Date: 20061101
  Receipt Date: 20061025
  Transmission Date: 20070319
  Serious: Yes (Hospitalization, Other)
  Sender: FDA-Public Use
  Company Number: DE-JNJFOC-20061006512

PATIENT
  Sex: Male
  Weight: 79.1 kg

DRUGS (2)
  1. RISPERDAL CONSTA [Suspect]
     Indication: DELUSIONAL DISORDER, PERSECUTORY TYPE
     Route: 030
  2. METHADONE HCL [Concomitant]

REACTIONS (4)
  - BLOOD PROLACTIN INCREASED [None]
  - GYNAECOMASTIA [None]
  - HOSPITALISATION [None]
  - THROMBOCYTOPENIA [None]
